FAERS Safety Report 7633285-9 (Version None)
Quarter: 2011Q3

REPORT INFORMATION
  Report Type: 
  Country: None (occurrence: None)
  Receive Date: 20110701
  Receipt Date: 20100418
  Transmission Date: 20111222
  Serious: Yes (Other)
  Sender: FDA-Public Use
  Company Number: 7001843

PATIENT
  Age: 47 Year
  Sex: Female

DRUGS (4)
  1. PROVIGIL [Concomitant]
  2. REBIF [Suspect]
     Indication: MULTIPLE SCLEROSIS
     Dosage: 44 MCG, 3 IN 1 WK, SUBCUTANEOUS
     Route: 058
     Dates: start: 20090305, end: 20100626
  3. OBETROL [Concomitant]
  4. IBUPROFEN [Concomitant]

REACTIONS (8)
  - HEADACHE [None]
  - DIPLOPIA [None]
  - MULTIPLE SCLEROSIS RELAPSE [None]
  - FATIGUE [None]
  - HYPERSOMNIA [None]
  - CONVULSION [None]
  - HYPERTENSION [None]
  - HALLUCINATION [None]
